FAERS Safety Report 19026857 (Version 3)
Quarter: 2021Q2

REPORT INFORMATION
  Report Type: Spontaneous
  Country: US (occurrence: US)
  Receive Date: 20210318
  Receipt Date: 20210430
  Transmission Date: 20210717
  Serious: No
  Sender: FDA-Public Use
  Company Number: US-JNJFOC-20210318616

PATIENT
  Age: 7 Decade
  Sex: Female

DRUGS (2)
  1. WOMENS ROGAINE UNSCENTED [Suspect]
     Active Substance: MINOXIDIL
     Indication: ALOPECIA
     Dosage: PUT THE RECOMMENDED AMOUNT, ONCE A DAY
     Route: 061
     Dates: start: 2018, end: 2020
  2. WOMENS ROGAINE UNSCENTED [Suspect]
     Active Substance: MINOXIDIL
     Route: 061
     Dates: start: 2018, end: 2020

REACTIONS (1)
  - Hair texture abnormal [Recovered/Resolved]

NARRATIVE: CASE EVENT DATE: 2018
